FAERS Safety Report 15298147 (Version 4)
Quarter: 2018Q4

REPORT INFORMATION
  Report Type: Spontaneous
  Country: CN (occurrence: CN)
  Receive Date: 20180820
  Receipt Date: 20181024
  Transmission Date: 20190204
  Serious: Yes (Other)
  Sender: FDA-Public Use
  Company Number: CN-009507513-1808CHN006520

PATIENT
  Age: 2 Year
  Sex: Male

DRUGS (2)
  1. SINGULAIR [Suspect]
     Active Substance: MONTELUKAST SODIUM
     Dosage: ^MORE OFTEN WITH ABOUT 3-4 MONTHS PER YEAR^
     Route: 048
     Dates: start: 2009, end: 201609
  2. SINGULAIR [Suspect]
     Active Substance: MONTELUKAST SODIUM
     Indication: ASTHMA
     Dosage: 5 MG, QD (FOR 3-4 MONTHS EVERY YEAR)
     Route: 048
     Dates: start: 2005, end: 201609

REACTIONS (9)
  - Adverse event [Not Recovered/Not Resolved]
  - Inappropriate schedule of product administration [Unknown]
  - Abnormal behaviour [Not Recovered/Not Resolved]
  - Obsessive-compulsive disorder [Not Recovered/Not Resolved]
  - Tic [Not Recovered/Not Resolved]
  - Feeling of despair [Not Recovered/Not Resolved]
  - Brain injury [Not Recovered/Not Resolved]
  - Aggression [Not Recovered/Not Resolved]
  - Emotional disorder [Not Recovered/Not Resolved]

NARRATIVE: CASE EVENT DATE: 2005
